FAERS Safety Report 7028820-8 (Version None)
Quarter: 2010Q4

REPORT INFORMATION
  Report Type: 
  Country: None (occurrence: None)
  Receive Date: 20101004
  Receipt Date: 20101004
  Transmission Date: 20110411
  Serious: Yes (Other)
  Sender: FDA-Public Use
  Company Number: None

PATIENT
  Sex: Female

DRUGS (1)
  1. HUMIRA [Suspect]
     Indication: RHEUMATOID ARTHRITIS
     Dosage: 40 MG EVERY 2 WEEKS SQ
     Route: 058
     Dates: start: 20100616, end: 20100930

REACTIONS (3)
  - ATAXIA [None]
  - PARAESTHESIA [None]
  - TREMOR [None]
